FAERS Safety Report 21843544 (Version 3)
Quarter: 2023Q1

REPORT INFORMATION
  Report Type: Spontaneous
  Country: US (occurrence: US)
  Receive Date: 20230110
  Receipt Date: 20230303
  Transmission Date: 20230417
  Serious: Yes (Other)
  Sender: FDA-Public Use
  Company Number: US-PFIZER INC-PV202300004943

PATIENT
  Age: 78 Year
  Sex: Female
  Weight: 66.213 kg

DRUGS (4)
  1. VYNDAMAX [Suspect]
     Active Substance: TAFAMIDIS
     Indication: Cardiac amyloidosis
     Dosage: 61 MG, DAILY
     Dates: start: 202107
  2. ELIQUIS [Concomitant]
     Active Substance: APIXABAN
     Dosage: 5 MG, 2X/DAY
     Dates: start: 201904
  3. METOPROLOL [Concomitant]
     Active Substance: METOPROLOL
     Dosage: 25 MG, 2X/DAY
     Dates: start: 201904
  4. DOFETILIDE [Concomitant]
     Active Substance: DOFETILIDE
     Dosage: 250 UG, 2X/DAY
     Dates: start: 202104

REACTIONS (4)
  - Cerebrovascular accident [Unknown]
  - COVID-19 [Recovered/Resolved]
  - Vertigo [Unknown]
  - Inner ear disorder [Recovered/Resolved]

NARRATIVE: CASE EVENT DATE: 20221001
